FAERS Safety Report 7939693-0 (Version None)
Quarter: 2011Q4

REPORT INFORMATION
  Report Type: 
  Country: None (occurrence: None)
  Receive Date: 20111125
  Receipt Date: 20111116
  Transmission Date: 20120403
  Serious: Yes (Hospitalization, Disabling)
  Sender: FDA-Public Use
  Company Number: PHHY2011DE100875

PATIENT
  Age: 10 Year
  Sex: Male

DRUGS (2)
  1. RITALIN [Suspect]
     Indication: ATTENTION DEFICIT/HYPERACTIVITY DISORDER
     Dosage: 5 MG, UNK
     Route: 048
  2. TIAPRIDE [Suspect]
     Indication: TIC
     Dosage: 50 MG, UNK

REACTIONS (4)
  - MUSCULOSKELETAL STIFFNESS [None]
  - SYNCOPE [None]
  - PARALYSIS [None]
  - DYSPNOEA [None]
